FAERS Safety Report 16651372 (Version 1)
Quarter: 2019Q3

REPORT INFORMATION
  Report Type: Spontaneous
  Country: FI (occurrence: FI)
  Receive Date: 20190731
  Receipt Date: 20190731
  Transmission Date: 20191004
  Serious: Yes (Other)
  Sender: FDA-Public Use
  Company Number: FI-EMD SERONO-9108005

PATIENT
  Age: 27 Year
  Sex: Female

DRUGS (1)
  1. MAVENCLAD [Suspect]
     Active Substance: CLADRIBINE
     Indication: MULTIPLE SCLEROSIS
     Dosage: FIRST YEAR TREATMENT

REACTIONS (9)
  - Altered visual depth perception [Not Recovered/Not Resolved]
  - Hyperreflexia [Unknown]
  - Back pain [Unknown]
  - Alanine aminotransferase increased [Unknown]
  - Uterine infection [Unknown]
  - Vaginal infection [Unknown]
  - Lymphopenia [Unknown]
  - Uhthoff^s phenomenon [Not Recovered/Not Resolved]
  - Eye pain [Unknown]

NARRATIVE: CASE EVENT DATE: 201905
